FAERS Safety Report 11995567 (Version 1)
Quarter: 2016Q1

REPORT INFORMATION
  Report Type: Spontaneous
  Country: PT (occurrence: PT)
  Receive Date: 20160203
  Receipt Date: 20160203
  Transmission Date: 20160526
  Serious: Yes (Other)
  Sender: FDA-Public Use
  Company Number: PT-NORTHSTAR HEALTHCARE HOLDINGS-PT-2016NSR000087

PATIENT

DRUGS (2)
  1. ALLOPURINOL. [Suspect]
     Active Substance: ALLOPURINOL
     Indication: PRODUCT USED FOR UNKNOWN INDICATION
     Dosage: 10 ?G, UNK
  2. ALLOPURINOL. [Suspect]
     Active Substance: ALLOPURINOL
     Dosage: 100 OR 300 MG, UNK

REACTIONS (1)
  - Angioedema [Unknown]
